FAERS Safety Report 6359114-1 (Version None)
Quarter: 2009Q3

REPORT INFORMATION
  Report Type: 
  Country: None (occurrence: None)
  Receive Date: 20090917
  Receipt Date: 20090911
  Transmission Date: 20100115
  Serious: Yes (Death)
  Sender: FDA-Public Use
  Company Number: US-CELGENEUS-163-21880-09090951

PATIENT
  Sex: Male

DRUGS (4)
  1. REVLIMID [Suspect]
     Route: 048
     Dates: start: 20090829, end: 20090101
  2. REVLIMID [Suspect]
     Route: 048
     Dates: start: 20070501
  3. REVLIMID [Suspect]
     Route: 048
     Dates: start: 20080101
  4. REVLIMID [Suspect]
     Route: 048
     Dates: start: 20090201

REACTIONS (1)
  - DEATH [None]
